FAERS Safety Report 17907835 (Version 2)
Quarter: 2020Q3

REPORT INFORMATION
  Report Type: Spontaneous
  Country: US (occurrence: US)
  Receive Date: 20200617
  Receipt Date: 20200814
  Transmission Date: 20201103
  Serious: No
  Sender: FDA-Public Use
  Company Number: US-JNJFOC-20200616604

PATIENT
  Age: 69 Year
  Sex: Male
  Weight: 88.53 kg

DRUGS (2)
  1. MENS ROGAINE EXTRA STRENGTH [Suspect]
     Active Substance: MINOXIDIL
     Dosage: DOSE:FOLLOW THE MEASUREMENT IN THE DROPPER
     Route: 061
     Dates: start: 20200601
  2. MENS ROGAINE EXTRA STRENGTH [Suspect]
     Active Substance: MINOXIDIL
     Indication: ALOPECIA
     Dosage: DOSE:FOLLOW THE MEASUREMENT IN THE DROPPER
     Route: 061
     Dates: start: 202005, end: 2020

REACTIONS (2)
  - Alopecia [Not Recovered/Not Resolved]
  - Expired product administered [Unknown]

NARRATIVE: CASE EVENT DATE: 202005
